FAERS Safety Report 21442442 (Version 5)
Quarter: 2022Q4

REPORT INFORMATION
  Report Type: Report from Study
  Country: US (occurrence: US)
  Receive Date: 20221011
  Receipt Date: 20221128
  Transmission Date: 20230113
  Serious: Yes (Other)
  Sender: FDA-Public Use
  Company Number: US-002147023-NVSC2022US225850

PATIENT
  Sex: Female

DRUGS (1)
  1. KESIMPTA [Suspect]
     Active Substance: OFATUMUMAB
     Indication: Product used for unknown indication
     Dosage: UNK
     Route: 065

REACTIONS (6)
  - Hemihypoaesthesia [Unknown]
  - Eye disorder [Unknown]
  - Visual impairment [Unknown]
  - Hot flush [Unknown]
  - Peripheral coldness [Unknown]
  - Product availability issue [Unknown]
